FAERS Safety Report 7368216-2 (Version None)
Quarter: 2011Q1

REPORT INFORMATION
  Report Type: 
  Country: None (occurrence: None)
  Receive Date: 20110225
  Receipt Date: 20110125
  Transmission Date: 20110831
  Serious: No
  Sender: FDA-Public Use
  Company Number: 321581

PATIENT
  Age: 62 Year
  Sex: Female

DRUGS (3)
  1. AMARYL [Concomitant]
  2. METFORMIN HCL [Concomitant]
  3. VICTOZA [Suspect]
     Indication: TYPE 2 DIABETES MELLITUS
     Dosage: 1.8 MG, QD, SUBCUTANEOUS
     Route: 058

REACTIONS (4)
  - FLATULENCE [None]
  - PALPITATIONS [None]
  - FATIGUE [None]
  - ALOPECIA [None]
